FAERS Safety Report 8079455-X (Version None)
Quarter: 2012Q1

REPORT INFORMATION
  Report Type: 
  Country: None (occurrence: None)
  Receive Date: 20120128
  Receipt Date: 20110825
  Transmission Date: 20120608
  Serious: No
  Sender: FDA-Public Use
  Company Number: US-ABBOTT-11P-163-0849310-00

PATIENT
  Age: 49 Year
  Sex: Female

DRUGS (6)
  1. METFFORMIN HYDROCHLORIDE [Concomitant]
     Indication: DIABETES MELLITUS
  2. PRISTIQ [Concomitant]
     Indication: DEPRESSION
     Dosage: FOR 2 YEARS
  3. TRIAMTERENE [Concomitant]
     Indication: FLUID RETENTION
  4. SYNTHROID [Concomitant]
     Indication: PRODUCT USED FOR UNKNOWN INDICATION
     Dosage: FOR 14 YEARS
  5. METFFORMIN HYDROCHLORIDE [Concomitant]
     Indication: PROPHYLAXIS
     Dosage: FOR 1 YEAR
  6. HUMIRA [Suspect]
     Indication: PSORIASIS
     Dates: start: 20110401, end: 20110701

REACTIONS (3)
  - BENIGN NEOPLASM [None]
  - PSORIASIS [None]
  - ARTHRITIS [None]
